FAERS Safety Report 16728817 (Version 2)
Quarter: 2019Q3

REPORT INFORMATION
  Report Type: Spontaneous
  Country: FR (occurrence: FR)
  Receive Date: 20190822
  Receipt Date: 20190829
  Transmission Date: 20191005
  Serious: Yes (Other)
  Sender: FDA-Public Use
  Company Number: FR-PFIZER INC-2019316992

PATIENT
  Age: 46 Year
  Sex: Female

DRUGS (32)
  1. SUFENTANIL [SUFENTANIL CITRATE] [Suspect]
     Active Substance: SUFENTANIL CITRATE
     Indication: SEDATION
     Dosage: 750 UG, 1X/DAY
     Route: 042
     Dates: start: 20190509, end: 20190512
  2. NOVORAPID [Suspect]
     Active Substance: INSULIN ASPART
     Indication: DIABETES MELLITUS
     Dosage: 25 IU, 1X/DAY
     Route: 042
     Dates: start: 20190509, end: 20190521
  3. SMECTA [Suspect]
     Active Substance: MONTMORILLONITE
     Indication: DIARRHOEA
     Dosage: UNK
     Route: 048
     Dates: start: 20190522, end: 20190603
  4. PANTOPRAZOLE [Suspect]
     Active Substance: PANTOPRAZOLE
     Indication: PROPHYLAXIS AGAINST GASTROINTESTINAL ULCER
     Dosage: 80 MG, 1X/DAY
     Route: 048
     Dates: start: 20190522
  5. LOVENOX [Suspect]
     Active Substance: ENOXAPARIN SODIUM
     Indication: PROPHYLAXIS
     Dosage: 4000 IU, 1X/DAY
     Route: 058
     Dates: start: 20190522, end: 20190607
  6. PANTOPRAZOLE SODIUM. [Suspect]
     Active Substance: PANTOPRAZOLE SODIUM
     Indication: GASTRIC MUCOSAL LESION
     Dosage: 80 MG, 1X/DAY
     Route: 042
     Dates: start: 20190509, end: 20190520
  7. TIORFAN [Suspect]
     Active Substance: RACECADOTRIL
     Indication: DIARRHOEA
     Dosage: 300 MG, 1X/DAY
     Route: 048
     Dates: start: 20190510, end: 20190511
  8. ROVAMYCINE [SPIRAMYCIN] [Suspect]
     Active Substance: SPIRAMYCIN
     Indication: FEBRILE BONE MARROW APLASIA
     Dosage: 9 MILLION IU, 1X/DAY
     Route: 048
     Dates: start: 20190507, end: 20190516
  9. ATARAX [Suspect]
     Active Substance: HYDROXYZINE HYDROCHLORIDE
     Indication: ANXIETY
     Dosage: 25 MILLIGRAM, QD
     Route: 048
     Dates: start: 20190530, end: 20190603
  10. TAZOCILLINE [Suspect]
     Active Substance: PIPERACILLIN SODIUM\TAZOBACTAM SODIUM
     Indication: FEBRILE BONE MARROW APLASIA
     Dosage: 12 G, 1X/DAY
     Route: 042
     Dates: start: 20190507, end: 20190516
  11. HEPARINE SODIUM PANPHARMA [Suspect]
     Active Substance: HEPARIN SODIUM
     Indication: THROMBOSIS
     Dosage: 15000 IU, 1X/DAY, THEN 10000 IU / DAY
     Route: 042
     Dates: start: 20190510, end: 20190514
  12. ESMERON [Suspect]
     Active Substance: ROCURONIUM BROMIDE
     Indication: ENDOTRACHEAL INTUBATION
     Dosage: 80 MG, SINGLE
     Route: 042
     Dates: start: 20190509, end: 20190509
  13. SPECIAFOLDINE [Suspect]
     Active Substance: FOLIC ACID
     Indication: ANAEMIA
     Dosage: 5 MG, 1X/DAY
     Route: 048
     Dates: start: 20190520
  14. NIMBEX [Suspect]
     Active Substance: CISATRACURIUM BESYLATE
     Indication: SEDATION
     Dosage: 120 MG, 1X/DAY
     Route: 042
     Dates: start: 20190509, end: 20190511
  15. LASILIX [FUROSEMIDE] [Suspect]
     Active Substance: FUROSEMIDE
     Indication: OEDEMA
     Dosage: 80 MG, SINGLE
     Route: 042
     Dates: start: 20190518, end: 20190518
  16. PARACETAMOL B BRAUN [Suspect]
     Active Substance: ACETAMINOPHEN
     Indication: PYREXIA
     Dosage: 4 G, 1X/DAY
     Route: 042
     Dates: start: 20190509, end: 20190511
  17. MORPHINE RENAUDIN [Suspect]
     Active Substance: MORPHINE
     Indication: PAIN
     Dosage: 6 MG, SINGLE
     Route: 042
     Dates: start: 20190518, end: 20190518
  18. SPASFON [PHLOROGLUCINOL;TRIMETHYLPHLOROGLUCINOL] [Suspect]
     Active Substance: PHLOROGLUCINOL\1,3,5-TRIMETHOXYBENZENE
     Indication: PAIN
     Dosage: 1 DF, SINGLE, ONE AMPOULE
     Route: 042
     Dates: start: 20190509, end: 20190509
  19. LANSOPRAZOLE ARROW [Suspect]
     Active Substance: LANSOPRAZOLE
     Indication: PEPTIC ULCER
     Dosage: 60 MILLIGRAM, QD
     Route: 048
     Dates: start: 20190522, end: 20190603
  20. HYPNOVEL [MIDAZOLAM HYDROCHLORIDE] [Suspect]
     Active Substance: MIDAZOLAM HYDROCHLORIDE
     Indication: SEDATION
     Dosage: 50 MG, 1X/DAY
     Route: 042
     Dates: start: 20190509, end: 20190511
  21. DOLIPRANE [Suspect]
     Active Substance: ACETAMINOPHEN
     Indication: PYREXIA
     Dosage: 4 G, 1X/DAY
     Route: 048
     Dates: start: 20190522
  22. VANCOMYCINE SANDOZ [Suspect]
     Active Substance: VANCOMYCIN
     Indication: FEBRILE BONE MARROW APLASIA
     Dosage: 1020 MG, EVERY 24 HOUR
     Route: 042
     Dates: start: 20190507, end: 20190511
  23. KETAMINE RENAUDIN [Suspect]
     Active Substance: KETAMINE
     Indication: ANAESTHESIA
     Dosage: 250 MG, SINGLE
     Route: 042
     Dates: start: 20190509, end: 20190509
  24. FLUCORTAC [Suspect]
     Active Substance: FLUDROCORTISONE ACETATE
     Indication: ADRENAL INSUFFICIENCY
     Dosage: 50 UG, 1X/DAY
     Route: 048
     Dates: start: 20190509, end: 20190514
  25. LOVENOX [Suspect]
     Active Substance: ENOXAPARIN SODIUM
     Dosage: 4000 IU, 1X/DAY
     Route: 058
     Dates: start: 20190521, end: 20190603
  26. HYDROCORTISONE UPJOHN [Suspect]
     Active Substance: HYDROCORTISONE
     Indication: ADRENAL INSUFFICIENCY
     Dosage: 200 MG, 1X/DAY
     Route: 042
     Dates: start: 20190509, end: 20190514
  27. CIFLOX [CIPROFLOXACIN HYDROCHLORIDE] [Suspect]
     Active Substance: CIPROFLOXACIN HYDROCHLORIDE
     Indication: FEBRILE BONE MARROW APLASIA
     Dosage: 800 MG, 1X/DAY
     Route: 042
     Dates: start: 20190507, end: 20190508
  28. NORADRENALINE MYLAN [Suspect]
     Active Substance: NOREPINEPHRINE\NOREPINEPHRINE BITARTRATE
     Indication: HAEMODYNAMIC INSTABILITY
     Dosage: 24 MG, 1X/DAY, THEN 8 MG
     Route: 042
     Dates: start: 20190509, end: 20190512
  29. EFFERALGAN CODEINE [Suspect]
     Active Substance: ACETAMINOPHEN\CODEINE PHOSPHATE
     Indication: PYREXIA
     Dosage: 4 G, 1X/DAY
     Route: 048
     Dates: start: 20190511, end: 20190522
  30. CIRCADIN [Suspect]
     Active Substance: MELATONIN
     Indication: INSOMNIA
     Dosage: 2 MG, 1X/DAY
     Route: 048
     Dates: start: 20190522
  31. TIORFAN [Suspect]
     Active Substance: RACECADOTRIL
     Indication: DIARRHOEA
     Dosage: IF NECESSARY
     Route: 048
     Dates: start: 20190522
  32. PROPOFOL LIPURO [Suspect]
     Active Substance: PROPOFOL
     Indication: SEDATION
     Dosage: 1 G, 1X/DAY
     Route: 042
     Dates: start: 20190512, end: 20190516

REACTIONS (3)
  - Rash maculo-papular [Recovered/Resolved]
  - Product use in unapproved indication [Unknown]
  - Off label use [Unknown]

NARRATIVE: CASE EVENT DATE: 20190528
